FAERS Safety Report 12929671 (Version 3)
Quarter: 2017Q1

REPORT INFORMATION
  Report Type: Report from Study
  Country: None (occurrence: CA)
  Receive Date: 20161110
  Receipt Date: 20170131
  Transmission Date: 20170428
  Serious: Yes (Hospitalization, Other)
  Sender: FDA-Public Use
  Company Number: CA-ABBVIE-16K-028-1768345-00

PATIENT
  Sex: Male

DRUGS (1)
  1. HUMIRA [Suspect]
     Active Substance: ADALIMUMAB
     Indication: RHEUMATOID ARTHRITIS
     Route: 058
     Dates: start: 20160804, end: 2016

REACTIONS (10)
  - Autoimmune disorder [Not Recovered/Not Resolved]
  - Delirium [Not Recovered/Not Resolved]
  - Vomiting [Not Recovered/Not Resolved]
  - Pyrexia [Not Recovered/Not Resolved]
  - Drug resistance [Unknown]
  - Pre-existing condition improved [Recovering/Resolving]
  - Staphylococcal infection [Not Recovered/Not Resolved]
  - Sepsis [Unknown]
  - Therapeutic response unexpected [Recovering/Resolving]
  - Influenza [Unknown]

NARRATIVE: CASE EVENT DATE: 2016
